FAERS Safety Report 9437705 (Version 2)
Quarter: 2013Q3

REPORT INFORMATION
  Report Type: Spontaneous
  Country: US (occurrence: US)
  Receive Date: 20130802
  Receipt Date: 20130809
  Transmission Date: 20140515
  Serious: Yes (Other)
  Sender: FDA-Public Use
  Company Number: US-BAYER-2013-091759

PATIENT
  Age: 82 Year
  Sex: Female

DRUGS (1)
  1. CAMPHO-PHENIQUE ANTISEPTIC LIQUID [Suspect]
     Indication: LIMB INJURY
     Dosage: 1 DOSE, PRN
     Route: 061
     Dates: start: 2013

REACTIONS (2)
  - Application site haemorrhage [None]
  - Therapeutic response unexpected [None]
